FAERS Safety Report 12199137 (Version 1)
Quarter: 2016Q1

REPORT INFORMATION
  Report Type: Spontaneous
  Country: SK (occurrence: SK)
  Receive Date: 20160322
  Receipt Date: 20160322
  Transmission Date: 20160526
  Serious: Yes (Hospitalization)
  Sender: FDA-Public Use
  Company Number: SK-ROCHE-1725535

PATIENT
  Sex: Female

DRUGS (14)
  1. LAPATINIB [Suspect]
     Active Substance: LAPATINIB
     Indication: INVASIVE DUCTAL BREAST CARCINOMA
     Route: 048
     Dates: start: 201305
  2. TRASTUZUMAB [Concomitant]
     Active Substance: TRASTUZUMAB
     Route: 042
  3. NAVELBIN [Concomitant]
     Dosage: 1, 8 DAY ?EVERY 21-28 DAYS
     Route: 048
  4. LAPATINIB [Suspect]
     Active Substance: LAPATINIB
     Route: 048
     Dates: start: 201304, end: 201409
  5. XELODA [Suspect]
     Active Substance: CAPECITABINE
     Route: 048
     Dates: start: 201304, end: 201409
  6. ZOLEDRONIC ACID [Concomitant]
     Active Substance: ZOLEDRONIC ACID
     Route: 065
  7. 5-FU [Concomitant]
     Active Substance: FLUOROURACIL
     Dosage: 1, 8 DAY
     Route: 065
  8. XELODA [Suspect]
     Active Substance: CAPECITABINE
     Indication: INVASIVE DUCTAL BREAST CARCINOMA
     Route: 048
     Dates: start: 201305
  9. LAPATINIB [Suspect]
     Active Substance: LAPATINIB
     Route: 048
  10. TRASTUZUMAB [Concomitant]
     Active Substance: TRASTUZUMAB
     Route: 042
  11. TAC [Concomitant]
     Active Substance: TRIAMCINOLONE ACETONIDE
  12. GEMCITABINE [Concomitant]
     Active Substance: GEMCITABINE\GEMCITABINE HYDROCHLORIDE
     Dosage: 1.,8.,15TH DAY WITH FREQUENCY EVERY 28 DAYS
     Route: 065
  13. DOCETAXEL. [Concomitant]
     Active Substance: DOCETAXEL
  14. TRASTUZUMAB [Concomitant]
     Active Substance: TRASTUZUMAB
     Route: 042
     Dates: start: 201601

REACTIONS (3)
  - General physical health deterioration [Recovered/Resolved]
  - Fatigue [Recovered/Resolved]
  - Gastritis [Recovered/Resolved]

NARRATIVE: CASE EVENT DATE: 201409
